FAERS Safety Report 12398732 (Version 1)
Quarter: 2016Q2

REPORT INFORMATION
  Report Type: Spontaneous
  Country: US (occurrence: US)
  Receive Date: 20160524
  Receipt Date: 20160524
  Transmission Date: 20160815
  Serious: Yes (Other)
  Sender: FDA-Public Use
  Company Number: US-FRI-1000084172

PATIENT
  Age: 57 Year
  Sex: Female

DRUGS (6)
  1. TESTOSTERONE. [Concomitant]
     Active Substance: TESTOSTERONE
     Indication: HORMONE REPLACEMENT THERAPY
  2. ARMOUR THYROID [Suspect]
     Active Substance: THYROID, PORCINE
     Dosage: 60MG
     Route: 048
  3. PROMETRIUM [Concomitant]
     Active Substance: PROGESTERONE
     Indication: HORMONE REPLACEMENT THERAPY
     Route: 048
  4. ESTROGEN [Concomitant]
     Active Substance: ESTRONE\SUS SCROFA OVARY
     Indication: HORMONE REPLACEMENT THERAPY
     Route: 048
  5. ARMOUR THYROID [Suspect]
     Active Substance: THYROID, PORCINE
     Indication: HYPOTHYROIDISM
     Dosage: 30MG
     Route: 048
     Dates: start: 2010
  6. ARMOUR THYROID [Suspect]
     Active Substance: THYROID, PORCINE
     Dosage: 90MG
     Route: 048
     Dates: start: 201512

REACTIONS (5)
  - Autoimmune thyroiditis [Not Recovered/Not Resolved]
  - Intentional product use issue [Recovered/Resolved]
  - Tri-iodothyronine decreased [Recovered/Resolved]
  - Blood thyroid stimulating hormone decreased [Not Recovered/Not Resolved]
  - Thyroid function test abnormal [Not Recovered/Not Resolved]

NARRATIVE: CASE EVENT DATE: 2015
